FAERS Safety Report 25582346 (Version 2)
Quarter: 2025Q3

REPORT INFORMATION
  Report Type: Spontaneous
  Country: EU (occurrence: EU)
  Receive Date: 20250720
  Receipt Date: 20250728
  Transmission Date: 20251020
  Serious: Yes (Hospitalization, Other)
  Sender: AUROBINDO
  Company Number: EU-FreseniusKabi-FK202509188

PATIENT
  Age: 48 Year
  Sex: Male

DRUGS (7)
  1. PREDNISOLONE [Suspect]
     Active Substance: PREDNISOLONE
     Indication: Chronic inflammatory demyelinating polyradiculoneuropathy
     Dosage: 60 MILLIGRAM, ONCE A DAY
     Route: 065
  2. PREDNISOLONE [Suspect]
     Active Substance: PREDNISOLONE
     Indication: Product use in unapproved indication
  3. Ceftriaxone;Metronidazole [Concomitant]
     Indication: Antibiotic therapy
     Route: 065
  4. CEFIXIME [Concomitant]
     Active Substance: CEFIXIME
     Indication: Antibiotic therapy
     Route: 048
  5. METRONIDAZOLE [Concomitant]
     Active Substance: METRONIDAZOLE
     Indication: Antibiotic therapy
     Route: 048
  6. PIPERACILLIN SODIUM\TAZOBACTAM SODIUM [Concomitant]
     Active Substance: PIPERACILLIN SODIUM\TAZOBACTAM SODIUM
     Indication: Antibiotic therapy
     Route: 065
  7. COTRIMOXAZOLE [Concomitant]
     Active Substance: SULFAMETHOXAZOLE\TRIMETHOPRIM
     Indication: Antibiotic therapy
     Route: 048

REACTIONS (6)
  - Nocardiosis [Recovering/Resolving]
  - Pulmonary cavitation [Recovering/Resolving]
  - Infection in an immunocompromised host [Recovering/Resolving]
  - Pulmonary nocardiosis [Unknown]
  - Immunosuppression [Unknown]
  - Off label use [Unknown]
